FAERS Safety Report 18850824 (Version 1)
Quarter: 2021Q1

REPORT INFORMATION
  Report Type: Spontaneous
  Country: US (occurrence: US)
  Receive Date: 20210204
  Receipt Date: 20210204
  Transmission Date: 20210420
  Serious: Yes (Hospitalization)
  Sender: FDA-Public Use
  Company Number: None

PATIENT
  Age: 64 Year
  Sex: Female
  Weight: 85.5 kg

DRUGS (1)
  1. YESCARTA [Suspect]
     Active Substance: AXICABTAGENE CILOLEUCEL

REACTIONS (21)
  - Confusional state [None]
  - Somnolence [None]
  - Clostridium difficile infection [None]
  - Pancytopenia [None]
  - Neurotoxicity [None]
  - Lethargy [None]
  - Encephalopathy [None]
  - Asthenia [None]
  - C-reactive protein increased [None]
  - Slow response to stimuli [None]
  - Loss of personal independence in daily activities [None]
  - Cytokine release syndrome [None]
  - Hypotension [None]
  - Depressed level of consciousness [None]
  - Aphasia [None]
  - Sensory loss [None]
  - Pyrexia [None]
  - Disorientation [None]
  - Fall [None]
  - Fatigue [None]
  - Nausea [None]

NARRATIVE: CASE EVENT DATE: 20210110
